FAERS Safety Report 25160917 (Version 1)
Quarter: 2025Q2

REPORT INFORMATION
  Report Type: Spontaneous
  Country: US (occurrence: None)
  Receive Date: 20250403
  Receipt Date: 20250403
  Transmission Date: 20250716
  Serious: Yes (Other)
  Sender: FDA-CTU
  Company Number: None

PATIENT
  Age: 76 Year
  Sex: Female
  Weight: 56.25 kg

DRUGS (10)
  1. NALTREXONE [Suspect]
     Active Substance: NALTREXONE
     Indication: Alcohol use disorder
     Dosage: FREQUENCY : DAILY;?
     Route: 048
     Dates: start: 20250401, end: 20250402
  2. URSODIOL [Concomitant]
     Active Substance: URSODIOL
  3. ELIQUIS [Concomitant]
     Active Substance: APIXABAN
  4. LOSARTAN [Concomitant]
     Active Substance: LOSARTAN
  5. DILTIAZEM [Concomitant]
     Active Substance: DILTIAZEM
  6. ALPRAZOLAM [Concomitant]
     Active Substance: ALPRAZOLAM
  7. PROBIOTICS NOS [Concomitant]
     Active Substance: PROBIOTICS NOS
  8. FISH OIL [Concomitant]
     Active Substance: FISH OIL
  9. CALCIUM [Concomitant]
     Active Substance: CALCIUM
  10. VITAMIN D [Concomitant]
     Active Substance: VITAMIN D NOS

REACTIONS (12)
  - Feeling abnormal [None]
  - Anxiety [None]
  - Thirst [None]
  - Dizziness [None]
  - Fatigue [None]
  - Disorientation [None]
  - Nausea [None]
  - Tremor [None]
  - Dyskinesia [None]
  - Tic [None]
  - Palpitations [None]
  - Asthenia [None]

NARRATIVE: CASE EVENT DATE: 20250401
